FAERS Safety Report 8576456-X (Version None)
Quarter: 2012Q3

REPORT INFORMATION
  Report Type: 
  Country: None (occurrence: None)
  Receive Date: 20120807
  Receipt Date: 20120801
  Transmission Date: 20120928
  Serious: Yes (Death, Hospitalization)
  Sender: FDA-Public Use
  Company Number: IL-ROCHE-1096405

PATIENT
  Age: 38 Year
  Sex: Male

DRUGS (2)
  1. AVASTIN [Suspect]
     Indication: ANGIOSARCOMA
  2. TAXOL [Concomitant]
     Indication: ANGIOSARCOMA

REACTIONS (1)
  - DEATH [None]
